FAERS Safety Report 5839344-5 (Version None)
Quarter: 2008Q3

REPORT INFORMATION
  Report Type: 
  Country: None (occurrence: None)
  Receive Date: 20080808
  Receipt Date: 20080729
  Transmission Date: 20090109
  Serious: Yes (Other)
  Sender: FDA-Public Use
  Company Number: JP-PFIZER INC-2008065489

PATIENT
  Sex: Male

DRUGS (9)
  1. GABAPEN [Suspect]
     Indication: EPILEPSY
     Route: 048
  2. MUCODYNE [Concomitant]
     Route: 048
  3. MUCOSOLVAN [Concomitant]
     Route: 048
  4. ZITHROMAX [Concomitant]
     Route: 048
  5. ALEVIATIN [Concomitant]
  6. RIVOTRIL [Concomitant]
     Route: 048
  7. SELENICA-R [Concomitant]
     Route: 048
  8. DEPAKENE [Concomitant]
     Route: 048
  9. FLOMOX [Concomitant]

REACTIONS (2)
  - ANTICONVULSANT DRUG LEVEL DECREASED [None]
  - EPILEPSY [None]
